FAERS Safety Report 13418362 (Version 1)
Quarter: 2017Q2

REPORT INFORMATION
  Report Type: Spontaneous
  Country: US (occurrence: US)
  Receive Date: 20170406
  Receipt Date: 20170406
  Transmission Date: 20170830
  Serious: No
  Sender: FDA-Public Use
  Company Number: US-TEIKOKU PHARMA USA-TPU2017-00121

PATIENT
  Sex: Male

DRUGS (1)
  1. LIDOCAINE PATCH [Suspect]
     Active Substance: LIDOCAINE
     Indication: ARTHRITIS
     Dosage: (REFUSED NUMBER OF PATCHES) APPLIED ON LEGS FOR 12 HOURS ON, THEN 12 HOURS OFF
     Route: 061

REACTIONS (2)
  - Application site coldness [Unknown]
  - Application site paraesthesia [Unknown]
